FAERS Safety Report 5631838-0 (Version None)
Quarter: 2008Q1

REPORT INFORMATION
  Report Type: 
  Country: None (occurrence: None)
  Receive Date: 20080219
  Receipt Date: 20080219
  Transmission Date: 20080703
  Serious: Yes (Other)
  Sender: FDA-Public Use
  Company Number: None

PATIENT
  Sex: Male
  Weight: 75.2971 kg

DRUGS (2)
  1. VANCOMYCIN [Suspect]
     Indication: INFECTION
     Dosage: 1.5G/250 MLS Q12H IV
     Route: 042
     Dates: start: 20080122, end: 20080130
  2. VANCOMYCIN [Suspect]

REACTIONS (3)
  - HEADACHE [None]
  - PHARYNGOLARYNGEAL PAIN [None]
  - RASH MACULO-PAPULAR [None]
